FAERS Safety Report 10215876 (Version 1)
Quarter: 2014Q2

REPORT INFORMATION
  Report Type: Spontaneous
  Country: CA (occurrence: None)
  Receive Date: 20140602
  Receipt Date: 20140602
  Transmission Date: 20141212
  Serious: Yes (Hospitalization)
  Sender: FDA-Public Use
  Company Number: 2014AP003131

PATIENT
  Age: 70 Year
  Sex: Male

DRUGS (8)
  1. APO-DONEPEZIL (DONEPEZIL) TABLET [Suspect]
     Indication: DEMENTIA ALZHEIMER^S TYPE
     Dosage: UNKNOWN
  2. PEPTO-BISMOL [Suspect]
     Indication: ABDOMINAL DISCOMFORT
     Dosage: UNKNOWN
  3. CALCIUM CARBONATE [Concomitant]
  4. ALENDRONIC ACID [Concomitant]
  5. PRAVASTATIN [Concomitant]
  6. EZETIMIBE [Concomitant]
  7. OMEPRAZOLE [Concomitant]
  8. PERINDOPRIL [Concomitant]

REACTIONS (9)
  - Subdural haematoma [None]
  - Neurotoxicity [None]
  - Fall [None]
  - Brain contusion [None]
  - Toxicity to various agents [None]
  - Cognitive disorder [None]
  - Gait disturbance [None]
  - Abdominal discomfort [None]
  - Diarrhoea [None]
